FAERS Safety Report 12939790 (Version 1)
Quarter: 2016Q4

REPORT INFORMATION
  Report Type: Spontaneous
  Country: US (occurrence: US)
  Receive Date: 20161115
  Receipt Date: 20161115
  Transmission Date: 20170207
  Serious: No
  Sender: FDA-Public Use
  Company Number: None

PATIENT

DRUGS (2)
  1. PRIVIGEN [Suspect]
     Active Substance: HUMAN IMMUNOGLOBULIN G
     Route: 042
  2. ALBUMIN HUMAN ALBUMIN (HUMAN)CSL BEHRING [Suspect]
     Active Substance: ALBUMIN HUMAN
     Route: 042

REACTIONS (2)
  - Product packaging confusion [None]
  - Product selection error [None]
